FAERS Safety Report 12093757 (Version 3)
Quarter: 2016Q1

REPORT INFORMATION
  Report Type: Spontaneous
  Country: RO (occurrence: RO)
  Receive Date: 20160219
  Receipt Date: 20160329
  Transmission Date: 20160526
  Serious: Yes (Death, Life-Threatening, Hospitalization, Other)
  Sender: FDA-Public Use
  Company Number: RO-ABBVIE-16K-135-1563821-00

PATIENT
  Sex: Male
  Weight: 90 kg

DRUGS (1)
  1. HUMIRA [Suspect]
     Active Substance: ADALIMUMAB
     Indication: RHEUMATOID ARTHRITIS
     Route: 058
     Dates: start: 20140201, end: 201601

REACTIONS (10)
  - Fatigue [Unknown]
  - Essential hypertension [Fatal]
  - Pyrexia [Unknown]
  - Ischaemic cardiomyopathy [Fatal]
  - Haemoptysis [Fatal]
  - Cardio-respiratory arrest [Fatal]
  - Muscular weakness [Unknown]
  - Lung neoplasm [Fatal]
  - Respiratory failure [Fatal]
  - Lung infection [Fatal]
